FAERS Safety Report 6881381-6 (Version None)
Quarter: 2010Q3

REPORT INFORMATION
  Report Type: 
  Country: None (occurrence: None)
  Receive Date: 20100728
  Receipt Date: 20100728
  Transmission Date: 20110219
  Serious: Yes (Death, Hospitalization)
  Sender: FDA-Public Use
  Company Number: None

PATIENT
  Sex: Female
  Weight: 40.7 kg

DRUGS (5)
  1. CYCLOPHOSPHAMIDE [Suspect]
     Dosage: 2930 MG
     Dates: end: 20100615
  2. CYTARABINE [Suspect]
     Dosage: 1740 MG
     Dates: end: 20100625
  3. MERCAPTOPURINE [Suspect]
     Dosage: 2500 MG
     Dates: end: 20100628
  4. PEG-L- ASPARAGINASE (K-H) [Suspect]
     Dosage: 6900 IU
     Dates: end: 20100629
  5. VINCRISTINE SULFATE [Suspect]
     Dosage: 7.5 MG
     Dates: end: 20100706

REACTIONS (14)
  - BLOOD PRESSURE DECREASED [None]
  - CHOLECYSTITIS [None]
  - CONVULSION [None]
  - GALLBLADDER NECROSIS [None]
  - HEART RATE INCREASED [None]
  - HYPOTENSION [None]
  - HYPOXIA [None]
  - MENTAL STATUS CHANGES [None]
  - MULTI-ORGAN FAILURE [None]
  - NEUTROPENIA [None]
  - PRODUCT CLOSURE ISSUE [None]
  - SEPSIS [None]
  - T-CELL TYPE ACUTE LEUKAEMIA [None]
  - TACHYCARDIA [None]
